FAERS Safety Report 10045668 (Version 2)
Quarter: 2014Q3

REPORT INFORMATION
  Report Type: Spontaneous
  Country: US (occurrence: US)
  Receive Date: 20140328
  Receipt Date: 20140717
  Transmission Date: 20150326
  Serious: Yes (Congenital Anomaly)
  Sender: FDA-Public Use
  Company Number: US-MYLANLABS-2014S1006397

PATIENT

DRUGS (1)
  1. ISOTRETINOIN [Suspect]
     Active Substance: ISOTRETINOIN
     Route: 064

REACTIONS (4)
  - Foetal retinoid syndrome [Not Recovered/Not Resolved]
  - Metastases to liver [Recovered/Resolved]
  - Neonatal neuroblastoma [Recovered/Resolved]
  - Foetal exposure during pregnancy [Recovering/Resolving]
